FAERS Safety Report 6512560-5 (Version None)
Quarter: 2009Q4

REPORT INFORMATION
  Report Type: 
  Country: None (occurrence: None)
  Receive Date: 20091222
  Receipt Date: 20091214
  Transmission Date: 20100525
  Serious: Yes (Hospitalization, Disabling, Other)
  Sender: FDA-Public Use
  Company Number: US-MERCK-0805USA02828

PATIENT
  Age: 58 Year
  Sex: Female

DRUGS (2)
  1. FOSAMAX [Suspect]
     Indication: OSTEOPOROSIS
     Route: 048
     Dates: start: 20030101, end: 20060401
  2. FOSAMAX [Suspect]
     Route: 048
     Dates: start: 20030901, end: 20060916

REACTIONS (13)
  - ADVERSE EVENT [None]
  - BONE DENSITY DECREASED [None]
  - CARDIAC MURMUR [None]
  - DEBRIDEMENT [None]
  - GINGIVAL BLEEDING [None]
  - HYPERSENSITIVITY [None]
  - HYPERTENSIVE CRISIS [None]
  - HYPOTENSION [None]
  - MUSCLE SPASMS [None]
  - ORAL DISORDER [None]
  - ORAL INFECTION [None]
  - OSTEONECROSIS [None]
  - PERIODONTAL DISEASE [None]
